FAERS Safety Report 12384467 (Version 1)
Quarter: 2016Q2

REPORT INFORMATION
  Report Type: Spontaneous
  Country: US (occurrence: None)
  Receive Date: 20160518
  Receipt Date: 20160518
  Transmission Date: 20160815
  Serious: No
  Sender: FDA-Public Use
  Company Number: None

PATIENT
  Age: 61 Year
  Sex: Female

DRUGS (6)
  1. STOOL SOFTNER [Concomitant]
     Active Substance: DOCUSATE SODIUM
  2. IBRANCE [Suspect]
     Active Substance: PALBOCICLIB
     Indication: BREAST CANCER
     Route: 048
     Dates: start: 20160311, end: 201605
  3. MULTIVITAMIN [Concomitant]
     Active Substance: VITAMINS
  4. LETROZOLE. [Concomitant]
     Active Substance: LETROZOLE
  5. MULTIVITAMIN [Concomitant]
     Active Substance: VITAMINS
  6. CALCIUM TABS CHEWABLE [Concomitant]

REACTIONS (3)
  - Bone fragmentation [None]
  - White blood cell count decreased [None]
  - Therapy change [None]

NARRATIVE: CASE EVENT DATE: 201605
